FAERS Safety Report 4409508-6 (Version None)
Quarter: 2004Q3

REPORT INFORMATION
  Report Type: 
  Country: None (occurrence: None)
  Receive Date: 20040727
  Receipt Date: 20040727
  Transmission Date: 20050211
  Serious: Yes (Hospitalization, Other)
  Sender: FDA-Public Use
  Company Number: None

PATIENT
  Age: 51 Year
  Sex: Female
  Weight: 58.514 kg

DRUGS (10)
  1. PHENYTOIN [Suspect]
     Indication: CONVULSION
     Dosage: 200 MG PO BID
     Route: 048
  2. KEPPRA [Concomitant]
  3. DILANTIN [Concomitant]
  4. EVISTA [Concomitant]
  5. DECADRON [Concomitant]
  6. TRICOR [Concomitant]
  7. NA SL [Concomitant]
  8. HYDROCHLOROTHIAZIDE [Concomitant]
  9. LISINOPRIL [Concomitant]
  10. LEXAPRO [Concomitant]

REACTIONS (5)
  - ASTHENIA [None]
  - ATAXIA [None]
  - COORDINATION ABNORMAL [None]
  - DRUG TOXICITY [None]
  - FALL [None]
